FAERS Safety Report 4333323-5 (Version None)
Quarter: 2004Q1

REPORT INFORMATION
  Report Type: 
  Country: None (occurrence: None)
  Receive Date: 20040329
  Receipt Date: 20040112
  Transmission Date: 20041129
  Serious: No
  Sender: FDA-Public Use
  Company Number: 04P-163-0246854-00

PATIENT
  Age: 56 Year
  Sex: Female
  Weight: 55.3388 kg

DRUGS (8)
  1. HUMIRA [Suspect]
     Indication: RHEUMATOID ARTHRITIS
     Dosage: 40 MG, 1 IN 2 WK, SUBCUTANEOUS
     Route: 058
     Dates: start: 20030501, end: 20031218
  2. CONJUGATED ESTROGEN [Concomitant]
  3. ALENDRONATE SODIUM [Concomitant]
  4. ATORVASTATIN [Concomitant]
  5. HYZAAR [Concomitant]
  6. CELECOXIB [Concomitant]
  7. THYROID TAB [Concomitant]
  8. METHOTREXATE [Concomitant]

REACTIONS (3)
  - FATIGUE [None]
  - INFLUENZA [None]
  - SINUSITIS [None]
